FAERS Safety Report 23503779 (Version 1)
Quarter: 2024Q1

REPORT INFORMATION
  Report Type: Spontaneous
  Country: US (occurrence: None)
  Receive Date: 20240208
  Receipt Date: 20240208
  Transmission Date: 20240410
  Serious: Yes (Hospitalization)
  Sender: FDA-Public Use
  Company Number: None

PATIENT
  Age: 11 Year
  Sex: Female
  Weight: 40.9 kg

DRUGS (1)
  1. METHOTREXATE [Suspect]
     Active Substance: METHOTREXATE
     Indication: Acute lymphocytic leukaemia
     Route: 037
     Dates: start: 20230706, end: 20230824

REACTIONS (10)
  - Pyrexia [None]
  - Neutropenia [None]
  - Seizure like phenomena [None]
  - Aphonia [None]
  - Hemiparesis [None]
  - Muscular weakness [None]
  - Peroneal nerve palsy [None]
  - Cytotoxic oedema [None]
  - Toxicity to various agents [None]
  - Neurotoxicity [None]

NARRATIVE: CASE EVENT DATE: 20230830
